FAERS Safety Report 6470621-3 (Version None)
Quarter: 2009Q4

REPORT INFORMATION
  Report Type: 
  Country: None (occurrence: None)
  Receive Date: 20091203
  Receipt Date: 20081218
  Transmission Date: 20100525
  Serious: No
  Sender: FDA-Public Use
  Company Number: US-ABBOTT-08P-163-0494277-00

PATIENT
  Sex: Female

DRUGS (5)
  1. MERIDIA [Suspect]
     Indication: WEIGHT DECREASED
     Route: 048
     Dates: start: 20060101
  2. MERIDIA [Suspect]
     Route: 048
     Dates: start: 20081001, end: 20081201
  3. MERIDIA [Suspect]
     Route: 048
     Dates: start: 20081201
  4. KLONOPIN [Concomitant]
     Indication: ANXIETY
  5. TRAMADOL HCL [Concomitant]
     Indication: HEADACHE
     Dosage: 1/2 TABLET PRN

REACTIONS (2)
  - EAR PAIN [None]
  - NASAL INFLAMMATION [None]
